FAERS Safety Report 5264928-5 (Version None)
Quarter: 2007Q1

REPORT INFORMATION
  Report Type: 
  Country: None (occurrence: None)
  Receive Date: 20070314
  Receipt Date: 20070213
  Transmission Date: 20070707
  Serious: Yes (Hospitalization)
  Sender: FDA-Public Use
  Company Number: 2007AP00917

PATIENT
  Age: 67 Year
  Sex: Female

DRUGS (3)
  1. SEROQUEL [Suspect]
     Indication: INSOMNIA
     Route: 048
     Dates: end: 20070205
  2. DEPAS [Suspect]
     Indication: INSOMNIA
     Route: 048
     Dates: start: 20070126, end: 20070203
  3. RIVOTRIL [Concomitant]
     Indication: INSOMNIA
     Route: 048
     Dates: end: 20070205

REACTIONS (1)
  - COMA [None]
